FAERS Safety Report 5068269-0 (Version None)
Quarter: 2006Q3

REPORT INFORMATION
  Report Type: 
  Country: None (occurrence: None)
  Receive Date: 20060713
  Receipt Date: 20060629
  Transmission Date: 20061208
  Serious: Yes (Hospitalization)
  Sender: FDA-Public Use
  Company Number: 2006BH011545

PATIENT
  Age: 59 Year
  Sex: Male
  Weight: 82.5547 kg

DRUGS (7)
  1. ADVATE [Suspect]
     Indication: ACQUIRED HAEMOPHILIA
  2. KALETRA [Concomitant]
  3. VIRIAD [Concomitant]
  4. DIDANOSINE [Concomitant]
  5. HYZAAR [Concomitant]
  6. PERCOCET [Concomitant]
  7. AMBIEN [Concomitant]

REACTIONS (2)
  - PERICARDIAL EFFUSION [None]
  - PERICARDITIS [None]
